FAERS Safety Report 9747593 (Version 4)
Quarter: 2014Q3

REPORT INFORMATION
  Report Type: Spontaneous
  Country: US (occurrence: None)
  Receive Date: 20131205
  Receipt Date: 20140915
  Transmission Date: 20150326
  Serious: Yes (Other)
  Sender: FDA-Public Use
  Company Number: 2013US002842

PATIENT
  Age: 31 Year
  Sex: Female
  Weight: 93.8 kg

DRUGS (7)
  1. IBUPROFEN (IBUPROFEN SODIUM) [Concomitant]
  2. HYDROCHLOROTHIAZIDE (HYDROCHLOROTHIAZIDE) [Concomitant]
     Active Substance: HYDROCHLOROTHIAZIDE
  3. HYDROCODONE BITARTRATE AND ACETAMINOPHEN (HYDROCODONE BITARTRATE, PARACETAMOL) [Concomitant]
  4. LISINOPRIL (LISINOPRIL HIHYDRATE) [Concomitant]
  5. PONATINIB [Suspect]
     Active Substance: PONATINIB
     Indication: CHRONIC MYELOID LEUKAEMIA
     Route: 048
     Dates: start: 20120503, end: 20130111
  6. LEVETIRACETAM (LEVETIRACETAM) [Concomitant]
     Active Substance: LEVETIRACETAM
  7. ROSUVASTATIN (ROSUVASTATIN) [Concomitant]
     Active Substance: ROSUVASTATIN

REACTIONS (3)
  - Carotid artery stenosis [None]
  - Carotid artery occlusion [None]
  - Cerebral artery stenosis [None]

NARRATIVE: CASE EVENT DATE: 20131118
